FAERS Safety Report 7713128-5 (Version None)
Quarter: 2011Q3

REPORT INFORMATION
  Report Type: 
  Country: None (occurrence: None)
  Receive Date: 20110826
  Receipt Date: 20110707
  Transmission Date: 20111222
  Serious: No
  Sender: FDA-Public Use
  Company Number: US-BAYER-2011-059312

PATIENT
  Sex: Female

DRUGS (1)
  1. MIRENA [Suspect]
     Indication: CONTRACEPTION
     Dosage: 20 MCG/24HR, CONT
     Route: 015
     Dates: start: 20110517

REACTIONS (5)
  - PRURITUS [None]
  - DYSPNOEA [None]
  - URTICARIA [None]
  - OEDEMA PERIPHERAL [None]
  - CHEST DISCOMFORT [None]
